FAERS Safety Report 6109296-1 (Version None)
Quarter: 2009Q1

REPORT INFORMATION
  Report Type: 
  Country: None (occurrence: None)
  Receive Date: 20090310
  Receipt Date: 20090227
  Transmission Date: 20090719
  Serious: Yes (Life-Threatening, Hospitalization, Other)
  Sender: FDA-Public Use
  Company Number: US-NOVOPROD-284651

PATIENT
  Sex: Female

DRUGS (4)
  1. NOVOLOG [Suspect]
     Indication: TYPE 1 DIABETES MELLITUS
     Dosage: 35-50 UNITS TID
     Route: 058
     Dates: end: 20090101
  2. NOVOLOG [Suspect]
     Dosage: SLIDING SCALE
     Route: 058
     Dates: start: 20090101
  3. LANTUS [Concomitant]
     Indication: TYPE 1 DIABETES MELLITUS
     Dosage: 90 IU, QD
     Route: 058
     Dates: end: 20090101
  4. LANTUS [Concomitant]
     Dosage: 90 UNK, QD (50 IN AM AND 40 IN PM)
     Route: 058
     Dates: start: 20090101

REACTIONS (6)
  - DEHYDRATION [None]
  - DIARRHOEA [None]
  - FALL [None]
  - FOOT FRACTURE [None]
  - HALLUCINATION [None]
  - HYPOGLYCAEMIC UNCONSCIOUSNESS [None]
